FAERS Safety Report 25999878 (Version 1)
Quarter: 2025Q4

REPORT INFORMATION
  Report Type: Spontaneous
  Country: EU (occurrence: EU)
  Receive Date: 20251105
  Receipt Date: 20251105
  Transmission Date: 20260117
  Serious: Yes (Other)
  Sender: MYLAN
  Company Number: EU-MYLANLABS-2025M1093362

PATIENT
  Age: 50 Year
  Sex: Male

DRUGS (2)
  1. PREDNISONE [Suspect]
     Active Substance: PREDNISONE
     Indication: Myasthenia gravis
     Dosage: UNK
  2. Immune globulin [Concomitant]
     Indication: Myasthenia gravis
     Dosage: UNK

REACTIONS (2)
  - Rebound effect [Recovering/Resolving]
  - Myasthenia gravis [Recovering/Resolving]
